FAERS Safety Report 20838397 (Version 1)
Quarter: 2022Q2

REPORT INFORMATION
  Report Type: Spontaneous
  Country: CA (occurrence: CA)
  Receive Date: 20220517
  Receipt Date: 20220517
  Transmission Date: 20220721
  Serious: Yes (Hospitalization, Other)
  Sender: FDA-Public Use
  Company Number: CA-Accord-263247

PATIENT
  Age: 53 Year
  Sex: Female

DRUGS (6)
  1. CLONAZEPAM [Suspect]
     Active Substance: CLONAZEPAM
     Dosage: 48 TABLETS OF 1MG OF CLONAZEPAM
  2. QUETIAPINE [Suspect]
     Active Substance: QUETIAPINE
     Dosage: 24 TABLETS OF 50 MG OF QUETIAPINE
  3. LORAZEPAM [Suspect]
     Active Substance: LORAZEPAM
     Dosage: 90 TABLETS OF 0.5 MG OF LORAZEPAM
  4. ALPRAZOLAM [Suspect]
     Active Substance: ALPRAZOLAM
     Dosage: 70 TABLETS OF 1 MG OF ALPRAZOLAM
  5. ACETAMINOPHEN\DEXTROMETHORPHAN HYDROBROMIDE\DOXYLAMINE SUCCINATE [Suspect]
     Active Substance: ACETAMINOPHEN\DEXTROMETHORPHAN HYDROBROMIDE\DOXYLAMINE SUCCINATE
     Dosage: 1 BOTTLE OF NYQUIL
  6. ZOPICLONE [Suspect]
     Active Substance: ZOPICLONE
     Dosage: 10 TABLETS OF 7.5 MG OF ZOPICLONE

REACTIONS (3)
  - Intentional overdose [Unknown]
  - Loss of consciousness [Recovered/Resolved]
  - Toxicity to various agents [Unknown]
